FAERS Safety Report 20290993 (Version 1)
Quarter: 2022Q1

REPORT INFORMATION
  Report Type: Spontaneous
  Country: DE (occurrence: DE)
  Receive Date: 20220104
  Receipt Date: 20220104
  Transmission Date: 20220423
  Serious: Yes (Hospitalization)
  Sender: FDA-Public Use
  Company Number: DE-SAMSUNG BIOEPIS-SB-2021-29355

PATIENT
  Age: 57 Year
  Sex: Female
  Weight: 61 kg

DRUGS (4)
  1. CARBOPLATIN [Suspect]
     Active Substance: CARBOPLATIN
     Dosage: DOSE: 1 (WITHOUT UNITE), FREQ:21 D;5 AUC
     Route: 042
     Dates: start: 20210920
  2. PACLITAXEL [Suspect]
     Active Substance: PACLITAXEL
     Dosage: FREQ:7 D;
     Route: 042
     Dates: start: 20210920
  3. TRASTUZUMAB [Suspect]
     Active Substance: TRASTUZUMAB
     Dosage: FREQ:21 D;
     Dates: start: 20210920
  4. PERTUZUMAB [Suspect]
     Active Substance: PERTUZUMAB
     Dosage: FREQ:21 D;
     Dates: start: 20210920

REACTIONS (2)
  - Vomiting [Not Recovered/Not Resolved]
  - General physical health deterioration [Not Recovered/Not Resolved]

NARRATIVE: CASE EVENT DATE: 20211204
